FAERS Safety Report 7070884-X (Version None)
Quarter: 2010Q4

REPORT INFORMATION
  Report Type: 
  Country: None (occurrence: None)
  Receive Date: 20101029
  Receipt Date: 20101026
  Transmission Date: 20110411
  Serious: Yes (Life-Threatening, Hospitalization, Disabling)
  Sender: FDA-Public Use
  Company Number: DK-PFIZER INC-2010124673

PATIENT
  Age: 15 Year
  Sex: Male

DRUGS (11)
  1. SOMATROPIN [Suspect]
     Indication: GROWTH HORMONE DEFICIENCY
     Dosage: UNK
     Route: 058
     Dates: start: 19990901
  2. SOMATROPIN [Suspect]
     Dosage: 1.6 MG, 1X/DAY
     Route: 058
     Dates: start: 20040821
  3. CORODIL [Concomitant]
     Indication: CARDIAC FAILURE
     Dosage: 2.5 MG, 1X/DAY
     Route: 048
     Dates: start: 20070814, end: 20080801
  4. CORODIL [Concomitant]
     Dosage: 5 MG, 1X/DAY
     Route: 048
     Dates: start: 20080819, end: 20090801
  5. CORODIL [Concomitant]
     Dosage: 10 MG, 1X/DAY
     Route: 048
     Dates: start: 20090826
  6. DIURAL [Concomitant]
     Indication: CARDIAC FAILURE
     Dosage: 30 MG, 1X/DAY
     Route: 048
     Dates: start: 19940625
  7. CAPOTEN [Concomitant]
     Indication: CARDIAC FAILURE
     Dosage: 25 MG, 1X/DAY
     Route: 048
     Dates: start: 19940625
  8. SPIRON /DEN/ [Concomitant]
     Indication: CARDIAC FAILURE
     Dosage: 50 MG, 1X/DAY
     Route: 048
     Dates: start: 19940625, end: 20070801
  9. SPIRON /DEN/ [Concomitant]
     Dosage: 37.5 MG, 1X/DAY
     Route: 048
     Dates: start: 20070814, end: 20090801
  10. SPIRON /DEN/ [Concomitant]
     Dosage: 25 MG, 1X/DAY
     Dates: start: 20090826
  11. DIGOXIN [Concomitant]
     Indication: CARDIAC FAILURE
     Dosage: UNK
     Dates: start: 19940625, end: 20090826

REACTIONS (2)
  - ARRHYTHMIA [None]
  - SYNCOPE [None]
